FAERS Safety Report 6020904-6 (Version None)
Quarter: 2008Q4

REPORT INFORMATION
  Report Type: 
  Country: None (occurrence: None)
  Receive Date: 20081229
  Receipt Date: 20081215
  Transmission Date: 20090506
  Serious: Yes (Death)
  Sender: FDA-Public Use
  Company Number: AU-PFIZER INC-2008157359

PATIENT

DRUGS (4)
  1. METHOTREXATE SODIUM [Suspect]
  2. VORICONAZOLE [Suspect]
  3. DEXAMETHASONE [Suspect]
  4. OMEPRAZOLE [Suspect]

REACTIONS (1)
  - HEPATIC FUNCTION ABNORMAL [None]
